FAERS Safety Report 16978781 (Version 1)
Quarter: 2019Q4

REPORT INFORMATION
  Report Type: Spontaneous
  Country: US (occurrence: US)
  Receive Date: 20191031
  Receipt Date: 20191031
  Transmission Date: 20200122
  Serious: No
  Sender: FDA-Public Use
  Company Number: US-SUNOVION-2019SUN004609

PATIENT

DRUGS (4)
  1. GRAVOL [Concomitant]
     Active Substance: DIMENHYDRINATE
  2. LATUDA [Suspect]
     Active Substance: LURASIDONE HYDROCHLORIDE
     Dosage: LOWER DOSE WITH DINNER (350 CALLORIES)
     Route: 048
  3. LATUDA [Suspect]
     Active Substance: LURASIDONE HYDROCHLORIDE
     Dosage: LOWER DOSE WITH DINNER (350 CALLORIES)
     Route: 048
  4. LATUDA [Suspect]
     Active Substance: LURASIDONE HYDROCHLORIDE
     Dosage: HIGHER DOSE, WITH DINNER (350 CALLORIES)
     Route: 048

REACTIONS (5)
  - Somnolence [Recovered/Resolved]
  - Fatigue [Unknown]
  - Nausea [Recovered/Resolved]
  - Anxiety [Unknown]
  - Therapeutic product effect increased [Unknown]
